FAERS Safety Report 11728340 (Version 1)
Quarter: 2015Q4

REPORT INFORMATION
  Report Type: Spontaneous
  Country: US (occurrence: US)
  Receive Date: 20151112
  Receipt Date: 20151112
  Transmission Date: 20160304
  Serious: Yes (Other)
  Sender: FDA-Public Use
  Company Number: US-PFIZER INC-2015382155

PATIENT
  Sex: Female

DRUGS (1)
  1. CHANTIX [Suspect]
     Active Substance: VARENICLINE TARTRATE
     Dosage: UNK
     Dates: end: 20150818

REACTIONS (3)
  - Hallucination, auditory [Unknown]
  - Emotional disorder [Unknown]
  - Feeling abnormal [Not Recovered/Not Resolved]

NARRATIVE: CASE EVENT DATE: 201508
